FAERS Safety Report 9388352 (Version 2)
Quarter: 2013Q3

REPORT INFORMATION
  Report Type: Spontaneous
  Country: US (occurrence: US)
  Receive Date: 20130708
  Receipt Date: 20130827
  Transmission Date: 20140515
  Serious: Yes (Other)
  Sender: FDA-Public Use
  Company Number: US-AMGEN-USASP2013047186

PATIENT
  Age: 51 Year
  Sex: Female
  Weight: 143.31 kg

DRUGS (12)
  1. ENBREL [Suspect]
     Indication: RHEUMATOID ARTHRITIS
     Dosage: 50 MG, QWK
     Route: 065
     Dates: start: 20130524, end: 20130701
  2. LIDODERM [Concomitant]
     Dosage: 5 %, QD
  3. LEVOTHYROXINE SODIUM [Concomitant]
     Dosage: 175 MUG, QD
  4. LORAZEPAM [Concomitant]
     Dosage: 0.5 MG, 1 TABLET PRN
  5. ZONISAMIDE [Concomitant]
     Dosage: 25 MG, 2 CAPSULES TWICE A WEEK
  6. CALCIUM + VITAMIN D                /01483701/ [Concomitant]
     Dosage: 600-200 MG 1 TABLET ONCE A DAY
  7. TRAMADOL HYDROCHLORIDE [Concomitant]
     Dosage: 50 MG, 1 TABLET AS NEEDED EVERY 4-6 HRS
  8. ALLOPURINOL [Concomitant]
     Dosage: 300 MG, QD
  9. METHOTREXATE [Concomitant]
     Dosage: 2.5 MG, 10 TABLET EVERY WEEKLY
     Route: 048
     Dates: start: 20120410
  10. FOLIC ACID [Concomitant]
     Dosage: 1 MG, 2 TABLET EVERY DAY
     Route: 048
     Dates: start: 20120410
  11. PREDNISONE [Concomitant]
     Dosage: 5 MG, 2 TABLET ONCE A DAY
     Route: 048
     Dates: start: 20120410
  12. CIPRO                              /00697201/ [Concomitant]
     Dosage: 500 MG, 1 TABLET EVERY 12 HRS

REACTIONS (21)
  - Palpitations [Not Recovered/Not Resolved]
  - Faeces discoloured [Recovered/Resolved]
  - Fatigue [Not Recovered/Not Resolved]
  - Asthenia [Not Recovered/Not Resolved]
  - Dyspnoea [Not Recovered/Not Resolved]
  - Abdominal pain upper [Not Recovered/Not Resolved]
  - Dyspepsia [Not Recovered/Not Resolved]
  - Synovitis [Unknown]
  - Muscle spasms [Recovered/Resolved]
  - Hyperhidrosis [Not Recovered/Not Resolved]
  - Insomnia [Not Recovered/Not Resolved]
  - Arthralgia [Unknown]
  - Red blood cell sedimentation rate increased [Unknown]
  - Vitamin D deficiency [Unknown]
  - Joint crepitation [Unknown]
  - Joint swelling [Unknown]
  - Pain in extremity [Unknown]
  - Bone disorder [Unknown]
  - Back pain [Unknown]
  - Hand deformity [Unknown]
  - Drug hypersensitivity [Unknown]
